FAERS Safety Report 9121514 (Version 1)
Quarter: 2013Q1

REPORT INFORMATION
  Report Type: Spontaneous
  Country: GB (occurrence: GB)
  Receive Date: 20130227
  Receipt Date: 20130227
  Transmission Date: 20140127
  Serious: Yes (Other)
  Sender: FDA-Public Use
  Company Number: GB-009507513-1302GBR010923

PATIENT
  Age: 32 Year
  Sex: Female
  Weight: 103.4 kg

DRUGS (2)
  1. NEXPLANON [Suspect]
     Dosage: 68 MG, UNK
     Route: 059
     Dates: start: 20130114, end: 20130115
  2. LIDOCAINE [Concomitant]
     Dosage: UNK
     Dates: start: 20130114, end: 20130115

REACTIONS (5)
  - Erythema induratum [Recovering/Resolving]
  - Hypersensitivity [Recovering/Resolving]
  - Implant site bruising [Recovering/Resolving]
  - Implant site rash [Recovering/Resolving]
  - Rash pruritic [Recovering/Resolving]
